FAERS Safety Report 4487994-3 (Version None)
Quarter: 2004Q4

REPORT INFORMATION
  Report Type: 
  Country: None (occurrence: None)
  Receive Date: 20041025
  Receipt Date: 20031011
  Transmission Date: 20050328
  Serious: Yes (Other)
  Sender: FDA-Public Use
  Company Number: 2004-04437

PATIENT
  Age: 43 Year
  Sex: Male

DRUGS (5)
  1. LOXITANE [Suspect]
     Dosage: 100 MG, BID
  2. LANSOPRAZOLE [Suspect]
     Dosage: 15 MG, DAILY, UN
  3. DIAZEPAM [Concomitant]
  4. RISPERDAL [Concomitant]
  5. PROCYCLIDINE (PROCYCLIDE) [Concomitant]

REACTIONS (2)
  - CARDIAC FAILURE [None]
  - CARDIOMYOPATHY [None]
